FAERS Safety Report 7522528 (Version 5)
Quarter: 2016Q1

REPORT INFORMATION
  Report Type: Report from Study
  Country: US (occurrence: US)
  Receive Date: 20100803
  Receipt Date: 20160307
  Transmission Date: 20160526
  Serious: Yes (Other)
  Sender: FDA-Public Use
  Company Number: US-ROCHE-715197

PATIENT
  Age: 42 Year
  Sex: Female

DRUGS (3)
  1. IMITREX [Concomitant]
     Active Substance: SUMATRIPTAN SUCCINATE
     Dosage: AS NEEDED
     Route: 065
  2. PEGASYS [Suspect]
     Active Substance: PEGINTERFERON ALFA-2A
     Indication: HEPATITIS C
     Dosage: FORM: PREFILLED SYRINGE
     Route: 058
  3. COPEGUS [Suspect]
     Active Substance: RIBAVIRIN
     Indication: HEPATITIS C
     Dosage: DIVIDED DOSES
     Route: 048

REACTIONS (11)
  - Aphthous ulcer [Unknown]
  - Upper extremity mass [Unknown]
  - Head injury [Unknown]
  - Blood glucose decreased [Unknown]
  - Tooth infection [Not Recovered/Not Resolved]
  - Red blood cell count decreased [Unknown]
  - Abdominal pain [Not Recovered/Not Resolved]
  - Oral infection [Not Recovered/Not Resolved]
  - White blood cell count decreased [Unknown]
  - Tooth disorder [Not Recovered/Not Resolved]
  - Ligament sprain [Unknown]

NARRATIVE: CASE EVENT DATE: 20100701
